FAERS Safety Report 14135029 (Version 2)
Quarter: 2018Q1

REPORT INFORMATION
  Report Type: Spontaneous
  Country: DE (occurrence: DE)
  Receive Date: 20171027
  Receipt Date: 20180312
  Transmission Date: 20180508
  Serious: Yes (Other)
  Sender: FDA-Public Use
  Company Number: DE-BAYER-2017-200118

PATIENT
  Age: 71 Year
  Sex: Male
  Weight: 85 kg

DRUGS (18)
  1. XOFIGO [Suspect]
     Active Substance: RADIUM RA-223 DICHLORIDE
     Indication: HORMONE-REFRACTORY PROSTATE CANCER
     Dosage: UNK
     Dates: start: 20171102, end: 20171102
  2. NOVAMINOSULFON [Concomitant]
     Active Substance: METAMIZOLE SODIUM
     Dosage: 30 GTT, TID
  3. PREGABALIN. [Concomitant]
     Active Substance: PREGABALIN
     Dosage: 200 MG, BID
  4. DENOSUMAB [Concomitant]
     Active Substance: DENOSUMAB
  5. AMLODIPINE BESILATE [Concomitant]
     Active Substance: AMLODIPINE BESYLATE
     Dosage: 6.94 MG, QD
  6. RAMIPRIL. [Concomitant]
     Active Substance: RAMIPRIL
     Dosage: 5 MG, QD
  7. DOCETAXEL. [Concomitant]
     Active Substance: DOCETAXEL
  8. XOFIGO [Suspect]
     Active Substance: RADIUM RA-223 DICHLORIDE
     Indication: HORMONE-REFRACTORY PROSTATE CANCER
     Dosage: UNK
     Dates: start: 20171130, end: 20171130
  9. FENTANYL. [Concomitant]
     Active Substance: FENTANYL
     Dosage: PATCH
     Dates: start: 20170930
  10. XOFIGO [Suspect]
     Active Substance: RADIUM RA-223 DICHLORIDE
     Indication: HORMONE-REFRACTORY PROSTATE CANCER
     Dosage: UNK
     Dates: start: 20170726, end: 20170726
  11. XOFIGO [Suspect]
     Active Substance: RADIUM RA-223 DICHLORIDE
     Indication: HORMONE-REFRACTORY PROSTATE CANCER
     Dosage: UNK
     Dates: start: 20171228, end: 20171228
  12. ENZALUTAMIDE [Concomitant]
     Active Substance: ENZALUTAMIDE
  13. VOLTAREN RESINAT [Concomitant]
     Active Substance: DICLOFENAC
     Dosage: 145.6 MG, BID
  14. XTANDI [Concomitant]
     Active Substance: ENZALUTAMIDE
     Dosage: 40 MG, QID
  15. MORPHIN [Concomitant]
     Active Substance: MORPHINE
     Dosage: 10 MG, BID
     Dates: end: 20170929
  16. LEUPRORELIN [Concomitant]
     Active Substance: LEUPROLIDE ACETATE
  17. TAMSULOSIN [Concomitant]
     Active Substance: TAMSULOSIN
     Dosage: 0.4 MG, QD
  18. ZOLEDRONIC ACID [Concomitant]
     Active Substance: ZOLEDRONIC ACID

REACTIONS (1)
  - Osteonecrosis of jaw [None]

NARRATIVE: CASE EVENT DATE: 2017
